FAERS Safety Report 9288526 (Version 5)
Quarter: 2014Q1

REPORT INFORMATION
  Report Type: Report from Study
  Country: KR (occurrence: KR)
  Receive Date: 20130514
  Receipt Date: 20140116
  Transmission Date: 20141002
  Serious: No
  Sender: FDA-Public Use
  Company Number: PHHY2013KR047082

PATIENT
  Age: 30 Year
  Sex: Female

DRUGS (4)
  1. AMN107 [Suspect]
     Indication: CHRONIC MYELOID LEUKAEMIA
     Dosage: 400 MG, PER DAY
     Route: 048
     Dates: start: 20121019
  2. AMPHOJEL [Concomitant]
     Indication: RASH
     Dosage: 600 MG
     Route: 048
     Dates: start: 20120228, end: 20121107
  3. SOLONDO [Concomitant]
     Indication: RASH
     Dosage: 20 MG
     Route: 048
     Dates: start: 20120228, end: 20121218
  4. XYZAL [Concomitant]
     Indication: RASH
     Dosage: 10 MG
     Route: 048
     Dates: start: 20120228, end: 20130114

REACTIONS (3)
  - Oedema [Not Recovered/Not Resolved]
  - Pyrexia [Recovered/Resolved]
  - Upper respiratory tract infection [Recovered/Resolved]
